FAERS Safety Report 9606322 (Version 1)
Quarter: 2013Q4

REPORT INFORMATION
  Report Type: Spontaneous
  Country: US (occurrence: US)
  Receive Date: 20131008
  Receipt Date: 20131008
  Transmission Date: 20140711
  Serious: No
  Sender: FDA-Public Use
  Company Number: US-AMGEN-USASP2013048750

PATIENT
  Age: 92 Year
  Sex: Female

DRUGS (3)
  1. PROLIA [Suspect]
     Indication: OSTEOPOROSIS POSTMENOPAUSAL
     Dosage: UNK
     Dates: start: 20120501
  2. PROLIA [Suspect]
     Dosage: UNK
  3. PROLIA [Suspect]
     Dosage: UNK

REACTIONS (4)
  - Fall [Unknown]
  - Arthralgia [Unknown]
  - Bone disorder [Unknown]
  - Pain in extremity [Unknown]
